FAERS Safety Report 7398357-5 (Version None)
Quarter: 2011Q2

REPORT INFORMATION
  Report Type: 
  Country: None (occurrence: None)
  Receive Date: 20110406
  Receipt Date: 20110405
  Transmission Date: 20111010
  Serious: Yes (Death)
  Sender: FDA-Public Use
  Company Number: US-MERCK-1104USA00411

PATIENT
  Age: 86 Year
  Sex: Male

DRUGS (1)
  1. COSOPT [Suspect]
     Route: 047

REACTIONS (1)
  - DEATH [None]
